FAERS Safety Report 15080028 (Version 1)
Quarter: 2018Q2

REPORT INFORMATION
  Report Type: Spontaneous
  Country: FR (occurrence: FR)
  Receive Date: 20180627
  Receipt Date: 20180627
  Transmission Date: 20180711
  Serious: Yes (Hospitalization)
  Sender: FDA-Public Use
  Company Number: FR-ELI_LILLY_AND_COMPANY-FR201806010079

PATIENT
  Age: 56 Year
  Sex: Female

DRUGS (4)
  1. PROZAC [Suspect]
     Active Substance: FLUOXETINE HYDROCHLORIDE
     Indication: ANXIETY DISORDER
     Dosage: 1 DF, DAILY
     Route: 048
     Dates: start: 20180413, end: 20180414
  2. TRANXENE [Suspect]
     Active Substance: CLORAZEPATE DIPOTASSIUM
     Indication: ANXIETY DISORDER
     Dosage: UNK UNK, UNKNOWN
     Route: 048
     Dates: start: 20180413, end: 20180414
  3. ZYPREXA [Suspect]
     Active Substance: OLANZAPINE
     Indication: ANXIETY DISORDER
     Dosage: 1 DF, DAILY
     Route: 048
     Dates: start: 20180413, end: 20180414
  4. SERESTA [Suspect]
     Active Substance: OXAZEPAM
     Indication: ANXIETY DISORDER
     Dosage: UNK UNK, UNKNOWN
     Route: 048
     Dates: start: 20180404, end: 20180414

REACTIONS (2)
  - Off label use [Unknown]
  - Drug eruption [Recovering/Resolving]

NARRATIVE: CASE EVENT DATE: 20180508
